FAERS Safety Report 18452143 (Version 3)
Quarter: 2020Q4

REPORT INFORMATION
  Report Type: Report from Study
  Country: US (occurrence: US)
  Receive Date: 20201102
  Receipt Date: 20201130
  Transmission Date: 20210114
  Serious: Yes (Life-Threatening, Hospitalization)
  Sender: FDA-Public Use
  Company Number: US-TAKEDA-2020TUS045260

PATIENT
  Age: 60 Year
  Sex: Female
  Weight: 70.8 kg

DRUGS (12)
  1. TEDUGLUTIDE [Suspect]
     Active Substance: TEDUGLUTIDE
     Dosage: 5 MILLIGRAM, 4 TIMES PER WEEK
     Route: 065
     Dates: start: 20180713, end: 20180911
  2. TEDUGLUTIDE [Suspect]
     Active Substance: TEDUGLUTIDE
     Dosage: 5 MILLIGRAM, 4 TIMES PER WEEK
     Route: 065
     Dates: start: 20180713, end: 20180911
  3. ZOSYN [Concomitant]
     Active Substance: PIPERACILLIN SODIUM\TAZOBACTAM SODIUM
     Indication: SEPSIS
     Dosage: 3 GRAM, QID
     Route: 042
     Dates: start: 20200922, end: 20201016
  4. PIPERACILLIN AND TAZOBACTAM [Concomitant]
     Active Substance: PIPERACILLIN SODIUM\TAZOBACTAM SODIUM
     Indication: INFECTION
     Dosage: 3.38 GRAM, TID
     Route: 042
     Dates: start: 20181020, end: 20181022
  5. TEDUGLUTIDE [Suspect]
     Active Substance: TEDUGLUTIDE
     Dosage: 5 MILLIGRAM, 4 TIMES PER WEEK
     Route: 065
     Dates: start: 20180713, end: 20180911
  6. VANCOMYCIN [Concomitant]
     Active Substance: VANCOMYCIN
     Indication: SEPSIS
     Dosage: 1250 MILLIGRAM, SINGLE
     Route: 042
     Dates: start: 20180922, end: 20181016
  7. TEDUGLUTIDE [Suspect]
     Active Substance: TEDUGLUTIDE
     Indication: SHORT-BOWEL SYNDROME
     Dosage: 5 MILLIGRAM, 7 TIMES PER WEEK
     Route: 065
     Dates: start: 20171013, end: 20171205
  8. TEDUGLUTIDE [Suspect]
     Active Substance: TEDUGLUTIDE
     Dosage: 5 MILLIGRAM, 4 TIMES PER WEEK
     Route: 065
     Dates: start: 20180713, end: 20180911
  9. DAPTOMYCINE [Concomitant]
     Active Substance: DAPTOMYCIN
     Indication: INFECTION
     Dosage: 355 MILLIGRAM, QD
     Route: 042
     Dates: start: 20181020, end: 20181022
  10. TEDUGLUTIDE [Suspect]
     Active Substance: TEDUGLUTIDE
     Indication: SHORT-BOWEL SYNDROME
     Dosage: 5 MILLIGRAM, 7 TIMES PER WEEK
     Route: 065
     Dates: start: 20171013, end: 20171205
  11. TEDUGLUTIDE [Suspect]
     Active Substance: TEDUGLUTIDE
     Indication: SHORT-BOWEL SYNDROME
     Dosage: 5 MILLIGRAM, 7 TIMES PER WEEK
     Route: 065
     Dates: start: 20171013, end: 20171205
  12. TEDUGLUTIDE [Suspect]
     Active Substance: TEDUGLUTIDE
     Indication: SHORT-BOWEL SYNDROME
     Dosage: 5 MILLIGRAM, 7 TIMES PER WEEK
     Route: 065
     Dates: start: 20171013, end: 20171205

REACTIONS (2)
  - Staphylococcal bacteraemia [Recovered/Resolved]
  - Device related infection [Recovered/Resolved]

NARRATIVE: CASE EVENT DATE: 20200114
